FAERS Safety Report 9845805 (Version 1)
Quarter: 2014Q1

REPORT INFORMATION
  Report Type: Spontaneous
  Country: US (occurrence: None)
  Receive Date: 20140122
  Receipt Date: 20140122
  Transmission Date: 20141002
  Serious: Yes (Other)
  Sender: FDA-Public Use
  Company Number: B0960201A

PATIENT
  Age: 89 Year
  Sex: Female

DRUGS (1)
  1. CARVEDILOL [Suspect]
     Route: 048

REACTIONS (1)
  - Death [None]
